FAERS Safety Report 8964009 (Version 2)
Quarter: 2013Q1

REPORT INFORMATION
  Report Type: Spontaneous
  Country: US (occurrence: US)
  Receive Date: 20121214
  Receipt Date: 20130102
  Transmission Date: 20140127
  Serious: Yes (Death)
  Sender: FDA-Public Use
  Company Number: US-JNJFOC-20121206447

PATIENT
  Sex: Male

DRUGS (9)
  1. XARELTO [Suspect]
     Indication: CEREBROVASCULAR ACCIDENT PROPHYLAXIS
     Route: 048
     Dates: start: 20121129
  2. XARELTO [Suspect]
     Indication: ATRIAL FIBRILLATION
     Route: 048
     Dates: start: 20121129
  3. COUMADIN [Concomitant]
     Route: 065
     Dates: end: 20121129
  4. DIOVAN HCT [Concomitant]
     Indication: HYPERTENSION
     Dosage: 160/12.5 (UNITS UNSPECIFIED)
     Route: 065
  5. FLOMAX [Concomitant]
     Indication: BENIGN PROSTATIC HYPERPLASIA
     Dosage: 0.4 (UNITS UNSPECIFIED)
     Route: 065
  6. ZOCOR [Concomitant]
     Indication: LIPIDS INCREASED
     Dosage: 20 (UNITS UNSPECIFIED)
     Route: 065
  7. PLAVIX [Concomitant]
     Indication: PERCUTANEOUS CORONARY INTERVENTION
     Dosage: 75 (UNITS UNSPECIFIED)
     Route: 065
  8. ASA [Concomitant]
     Indication: PERCUTANEOUS CORONARY INTERVENTION
     Dosage: 81 (UNITS UNSPECIFIED)
     Route: 065
  9. NORVASC [Concomitant]
     Indication: HYPERTENSION
     Dosage: 81 (UNITS UNSPECIFIED)
     Route: 065

REACTIONS (2)
  - Sudden death [Fatal]
  - Cardiac stress test abnormal [Unknown]
